FAERS Safety Report 23284742 (Version 1)
Quarter: 2023Q4

REPORT INFORMATION
  Report Type: Other
  Country: KR (occurrence: KR)
  Receive Date: 20231211
  Receipt Date: 20231211
  Transmission Date: 20240110
  Serious: Yes (Other)
  Sender: FDA-Public Use
  Company Number: KR-ASTELLAS-2023US036816

PATIENT
  Age: 67 Year
  Sex: Female

DRUGS (1)
  1. MIRABEGRON [Suspect]
     Active Substance: MIRABEGRON
     Indication: Bladder disorder
     Route: 065
     Dates: start: 20200406

REACTIONS (2)
  - Xerophthalmia [Unknown]
  - Dry mouth [Unknown]

NARRATIVE: CASE EVENT DATE: 20200406
